FAERS Safety Report 5680326-4 (Version None)
Quarter: 2008Q1

REPORT INFORMATION
  Report Type: 
  Country: None (occurrence: None)
  Receive Date: 20080326
  Receipt Date: 20080318
  Transmission Date: 20080703
  Serious: Yes (Other)
  Sender: FDA-Public Use
  Company Number: GB-TEVA-169026ISR

PATIENT
  Age: 80 Year
  Sex: Female

DRUGS (2)
  1. SIMVASTATIN [Suspect]
     Route: 048
  2. OMEPRAZOLE [Suspect]
     Indication: GASTROINTESTINAL DISORDER
     Route: 048

REACTIONS (1)
  - DYSPHAGIA [None]
